FAERS Safety Report 25765183 (Version 1)
Quarter: 2025Q3

REPORT INFORMATION
  Report Type: Spontaneous
  Country: IN (occurrence: IN)
  Receive Date: 20250905
  Receipt Date: 20250905
  Transmission Date: 20251021
  Serious: Yes (Hospitalization, Other)
  Sender: ZYDUS PHARM
  Company Number: IN-CADILA HEALTHCARE LIMITED-IN-ZYDUS-128032

PATIENT

DRUGS (5)
  1. PREGABALIN [Suspect]
     Active Substance: PREGABALIN
     Indication: Seizure
     Route: 048
  2. PREGABALIN [Suspect]
     Active Substance: PREGABALIN
     Indication: Sleep disorder
     Route: 048
  3. PREGABALIN [Suspect]
     Active Substance: PREGABALIN
     Route: 048
  4. PREGABALIN [Suspect]
     Active Substance: PREGABALIN
     Route: 065
  5. TRAMADOL [Suspect]
     Active Substance: TRAMADOL
     Indication: Product used for unknown indication
     Route: 065

REACTIONS (16)
  - Withdrawal syndrome [Recovering/Resolving]
  - Irritability [Recovering/Resolving]
  - Asthenia [Recovering/Resolving]
  - Hypoaesthesia [Recovering/Resolving]
  - Gastrointestinal disorder [Unknown]
  - Dyspnoea [Recovering/Resolving]
  - Confusional state [Recovering/Resolving]
  - Weight increased [Unknown]
  - Generalised oedema [Recovering/Resolving]
  - Headache [Recovering/Resolving]
  - Drug dependence [Unknown]
  - Foaming at mouth [Unknown]
  - Generalised tonic-clonic seizure [Unknown]
  - Loss of consciousness [Unknown]
  - Intentional product misuse [Unknown]
  - Intentional overdose [Unknown]
